FAERS Safety Report 8350373-2 (Version None)
Quarter: 2012Q2

REPORT INFORMATION
  Report Type: 
  Country: None (occurrence: None)
  Receive Date: 20120510
  Receipt Date: 20120508
  Transmission Date: 20120825
  Serious: Yes (Hospitalization, Other)
  Sender: FDA-Public Use
  Company Number: PHHY2012ID039373

PATIENT
  Age: 28 Year
  Sex: Male

DRUGS (1)
  1. SEBIVO [Suspect]
     Indication: HEPATITIS B
     Route: 048

REACTIONS (2)
  - MUCOSAL ULCERATION [None]
  - STEVENS-JOHNSON SYNDROME [None]
